FAERS Safety Report 19648680 (Version 3)
Quarter: 2021Q4

REPORT INFORMATION
  Report Type: Spontaneous
  Country: US (occurrence: US)
  Receive Date: 20210803
  Receipt Date: 20211007
  Transmission Date: 20220303
  Serious: Yes (Other)
  Sender: FDA-Public Use
  Company Number: US-CIPLA LTD.-2021US05196

PATIENT

DRUGS (1)
  1. ALBUTEROL [Suspect]
     Active Substance: ALBUTEROL
     Indication: Product used for unknown indication
     Dosage: 2 PUFFS, PRN

REACTIONS (6)
  - Choking [Recovered/Resolved]
  - Accidental device ingestion [Unknown]
  - Foaming at mouth [Unknown]
  - Cyanosis [Unknown]
  - Product design issue [Unknown]
  - Near death experience [Unknown]
